FAERS Safety Report 7700479-3 (Version None)
Quarter: 2011Q3

REPORT INFORMATION
  Report Type: 
  Country: None (occurrence: None)
  Receive Date: 20110822
  Receipt Date: 20110808
  Transmission Date: 20111222
  Serious: Yes (Other)
  Sender: FDA-Public Use
  Company Number: US-MYLANLABS-2011S1016637

PATIENT
  Age: 16 Year
  Sex: Male

DRUGS (8)
  1. ZIDOVUDINE [Suspect]
     Indication: HIV INFECTION
     Route: 065
  2. TENOFOVIR DISOPROXIL FUMARATE [Concomitant]
     Indication: HIV INFECTION
     Route: 065
  3. RITONAVIR [Concomitant]
     Indication: HIV INFECTION
     Route: 065
  4. MEGESTROL ACETATE [Concomitant]
     Route: 065
  5. STAVUDINE [Suspect]
     Indication: HIV INFECTION
     Route: 065
  6. FENOFIBRATE [Concomitant]
     Indication: HYPERTRIGLYCERIDAEMIA
     Route: 065
  7. DIDANOSINE [Suspect]
     Indication: HIV INFECTION
     Route: 065
  8. LOPINAVIR [Suspect]
     Indication: HIV INFECTION
     Route: 065

REACTIONS (3)
  - LIPODYSTROPHY ACQUIRED [None]
  - HYPERTRIGLYCERIDAEMIA [None]
  - TYPE 2 DIABETES MELLITUS [None]
